FAERS Safety Report 4995075-5 (Version None)
Quarter: 2006Q2

REPORT INFORMATION
  Report Type: 
  Country: None (occurrence: None)
  Receive Date: 20060503
  Receipt Date: 20060412
  Transmission Date: 20061013
  Serious: Yes (Other)
  Sender: FDA-Public Use
  Company Number: 200610714BWH

PATIENT
  Age: 66 Year
  Sex: Female
  Weight: 108.8633 kg

DRUGS (10)
  1. NEXAVAR [Suspect]
     Indication: METASTASES TO BONE
     Dosage: SEE IMAGE
     Route: 048
     Dates: start: 20060120, end: 20060206
  2. NEXAVAR [Suspect]
     Indication: RENAL CELL CARCINOMA STAGE UNSPECIFIED
     Dosage: SEE IMAGE
     Route: 048
     Dates: start: 20060120, end: 20060206
  3. GABAPENTIN [Concomitant]
  4. LEXAPRO [Concomitant]
  5. DETROL [Concomitant]
  6. CRESTOR [Concomitant]
  7. TRAZODONE HCL [Concomitant]
  8. NAPROSYN [Concomitant]
  9. PROMETHAZINE [Concomitant]
  10. PHENTERMINE [Concomitant]

REACTIONS (2)
  - RASH GENERALISED [None]
  - SURGERY [None]
